FAERS Safety Report 20175449 (Version 2)
Quarter: 2021Q4

REPORT INFORMATION
  Report Type: Spontaneous
  Country: JP (occurrence: JP)
  Receive Date: 20211213
  Receipt Date: 20211217
  Transmission Date: 20220303
  Serious: Yes (Hospitalization, Other)
  Sender: FDA-Public Use
  Company Number: JP-GLAXOSMITHKLINE-JP2021JPN212596

PATIENT
  Age: 7 Decade
  Sex: Male

DRUGS (4)
  1. BENLYSTA [Suspect]
     Active Substance: BELIMUMAB
     Indication: Systemic lupus erythematosus
     Dosage: 200 MG, WE
     Dates: start: 20210611
  2. MYCOPHENOLATE MOFETIL [Suspect]
     Active Substance: MYCOPHENOLATE MOFETIL
  3. PREDNISOLONE [Suspect]
     Active Substance: PREDNISOLONE
  4. CYCLOPHOSPHAMIDE IV [Concomitant]

REACTIONS (2)
  - Duodenal perforation [Not Recovered/Not Resolved]
  - Diarrhoea [Recovered/Resolved]
